FAERS Safety Report 11584104 (Version 1)
Quarter: 2015Q4

REPORT INFORMATION
  Report Type: Spontaneous
  Country: US (occurrence: US)
  Receive Date: 20151001
  Receipt Date: 20151001
  Transmission Date: 20160304
  Serious: Yes (Hospitalization)
  Sender: FDA-Public Use
  Company Number: US-ROCHE-645025

PATIENT
  Age: 62 Year
  Sex: Female

DRUGS (4)
  1. PEGASYS [Suspect]
     Active Substance: PEGINTERFERON ALFA-2A
     Indication: HEPATITIS C
     Dosage: FORM: PREFILLED SYRINGE
     Route: 065
  2. PEGASYS [Suspect]
     Active Substance: PEGINTERFERON ALFA-2A
     Route: 065
  3. RIBASPHERE RIBAPAK [Suspect]
     Active Substance: RIBAVIRIN
     Route: 065
  4. RIBASPHERE RIBAPAK [Suspect]
     Active Substance: RIBAVIRIN
     Indication: HEPATITIS C
     Dosage: DIVIDED DOSES
     Route: 065

REACTIONS (6)
  - Rash pruritic [Not Recovered/Not Resolved]
  - Red blood cell count decreased [Unknown]
  - Hypoaesthesia [Not Recovered/Not Resolved]
  - Urticaria vesiculosa [Not Recovered/Not Resolved]
  - Memory impairment [Not Recovered/Not Resolved]
  - Influenza like illness [Not Recovered/Not Resolved]

NARRATIVE: CASE EVENT DATE: 20090716
